FAERS Safety Report 7144755-4 (Version None)
Quarter: 2010Q4

REPORT INFORMATION
  Report Type: 
  Country: None (occurrence: None)
  Receive Date: 20101026
  Receipt Date: 20100910
  Transmission Date: 20110411
  Serious: Yes (Other)
  Sender: FDA-Public Use
  Company Number: 1713747-2010-000008

PATIENT
  Sex: Female

DRUGS (2)
  1. DELFLEX W/ DEXTROSE 4.25% [Suspect]
     Indication: RENAL FAILURE CHRONIC
     Dosage: INTRAPERITONEALLY
     Route: 039
     Dates: start: 20100813
  2. LIBERTY CYCLER [Concomitant]

REACTIONS (1)
  - PERITONITIS [None]
